FAERS Safety Report 8491527-4 (Version None)
Quarter: 2012Q2

REPORT INFORMATION
  Report Type: 
  Country: None (occurrence: None)
  Receive Date: 20120402
  Receipt Date: 20100318
  Transmission Date: 20120825
  Serious: Yes (Other)
  Sender: FDA-Public Use
  Company Number: PHEH2010US03195

PATIENT
  Age: 73 Year
  Sex: Female

DRUGS (1)
  1. EXFORGE [Suspect]
     Indication: HYPERTENSION
     Dosage: 5/160 ONE TIME PER DAY, ORAL
     Route: 048
     Dates: start: 20091001

REACTIONS (4)
  - ANGIOEDEMA [None]
  - FACE OEDEMA [None]
  - LIP SWELLING [None]
  - RASH [None]
